FAERS Safety Report 7386403-4 (Version None)
Quarter: 2011Q1

REPORT INFORMATION
  Report Type: 
  Country: None (occurrence: None)
  Receive Date: 20110331
  Receipt Date: 20110321
  Transmission Date: 20110831
  Serious: Yes (Hospitalization)
  Sender: FDA-Public Use
  Company Number: PHHY2010CA14373

PATIENT
  Sex: Male

DRUGS (3)
  1. CHAMPIX [Concomitant]
  2. CLOZARIL [Suspect]
     Indication: SCHIZOPHRENIA
     Dates: start: 20090501
  3. CLOZARIL [Suspect]
     Dosage: 375 MG, DAILY
     Route: 048

REACTIONS (4)
  - EOSINOPHIL COUNT INCREASED [None]
  - INCOHERENT [None]
  - NEUTROPHIL COUNT INCREASED [None]
  - MONOCYTE COUNT INCREASED [None]
